FAERS Safety Report 15630390 (Version 2)
Quarter: 2020Q2

REPORT INFORMATION
  Report Type: Report from Study
  Country: US (occurrence: US)
  Receive Date: 20181118
  Receipt Date: 20200519
  Transmission Date: 20200713
  Serious: Yes (Hospitalization)
  Sender: FDA-Public Use
  Company Number: PHEH2018US048493

PATIENT
  Age: 16 Year
  Sex: Female

DRUGS (2)
  1. GILENYA [Suspect]
     Active Substance: FINGOLIMOD HYDROCHLORIDE
     Dosage: 0.5 MG, QD
     Route: 048
  2. GILENYA [Suspect]
     Active Substance: FINGOLIMOD HYDROCHLORIDE
     Indication: MULTIPLE SCLEROSIS
     Dosage: UNK UNK, QD
     Route: 048
     Dates: start: 20181112

REACTIONS (4)
  - Headache [Recovered/Resolved]
  - Mobility decreased [Recovering/Resolving]
  - Multiple sclerosis [Recovering/Resolving]
  - Peroneal nerve palsy [Recovering/Resolving]

NARRATIVE: CASE EVENT DATE: 20181112
